FAERS Safety Report 17620969 (Version 3)
Quarter: 2020Q2

REPORT INFORMATION
  Report Type: Spontaneous
  Country: IT (occurrence: IT)
  Receive Date: 20200403
  Receipt Date: 20200504
  Transmission Date: 20200713
  Serious: Yes (Death, Life-Threatening, Hospitalization, Other)
  Sender: FDA-Public Use
  Company Number: IT-STRIDES ARCOLAB LIMITED-2020SP004379

PATIENT
  Age: 61 Year
  Sex: Male

DRUGS (12)
  1. EVEROLIMUS. [Suspect]
     Active Substance: EVEROLIMUS
     Indication: LIVER TRANSPLANT
     Dosage: 3 MILLIGRAM PER DAY
     Route: 065
     Dates: start: 201611, end: 2016
  2. MEROPENEM. [Concomitant]
     Active Substance: MEROPENEM
     Indication: ANTIBIOTIC THERAPY
     Dosage: UNK
     Route: 065
     Dates: start: 2016
  3. ETANERCEPT [Suspect]
     Active Substance: ETANERCEPT
     Indication: ADJUVANT THERAPY
  4. TACROLIMUS. [Suspect]
     Active Substance: TACROLIMUS
     Dosage: 0.04 MG/KG/DAY, LOWER DOSE
     Route: 065
     Dates: start: 2016
  5. METHYLPREDNISOLONE. [Suspect]
     Active Substance: METHYLPREDNISOLONE
     Dosage: 40 MILLIGRAM PER DAY, HIGHER DOSE
     Route: 065
     Dates: start: 2016
  6. ANTITHYMOCYTE IMMUNOGLOBULIN [Suspect]
     Active Substance: THYMOCYTE IMMUNE GLOBULIN NOS
     Indication: ADJUVANT THERAPY
  7. ANTITHYMOCYTE IMMUNOGLOBULIN [Suspect]
     Active Substance: THYMOCYTE IMMUNE GLOBULIN NOS
     Indication: GRAFT VERSUS HOST DISEASE
     Dosage: 1.5 MG/KG/DAY
     Route: 065
     Dates: start: 2016, end: 2016
  8. DAPTOMYCIN. [Concomitant]
     Active Substance: DAPTOMYCIN
     Indication: ANTIBIOTIC THERAPY
     Dosage: UNK
     Route: 065
     Dates: start: 2016
  9. CASPOFUNGIN [Concomitant]
     Active Substance: CASPOFUNGIN
     Indication: ANTIFUNGAL PROPHYLAXIS
     Dosage: UNK
     Route: 065
     Dates: start: 2016
  10. TACROLIMUS. [Suspect]
     Active Substance: TACROLIMUS
     Indication: LIVER TRANSPLANT
     Dosage: 0.075 MG/KG/DAY, INDUCTION
     Route: 065
     Dates: start: 201611, end: 2016
  11. METHYLPREDNISOLONE. [Suspect]
     Active Substance: METHYLPREDNISOLONE
     Indication: LIVER TRANSPLANT
     Dosage: 20 MILLIGRAM PER DAY, INDUCTION
     Route: 065
     Dates: start: 201611, end: 2016
  12. ETANERCEPT [Suspect]
     Active Substance: ETANERCEPT
     Indication: GRAFT VERSUS HOST DISEASE
     Dosage: 50 MILLIGRAM, ONCE A WEEK
     Route: 058
     Dates: start: 2016

REACTIONS (22)
  - Aspergillus infection [Fatal]
  - Diarrhoea [Unknown]
  - Bone marrow disorder [Unknown]
  - Aplastic anaemia [Unknown]
  - Pyrexia [Unknown]
  - Rash erythematous [Unknown]
  - Multiple organ dysfunction syndrome [Fatal]
  - Leukopenia [Recovered/Resolved]
  - Enterococcal infection [Fatal]
  - Chimerism [Unknown]
  - Rash [Unknown]
  - Septic shock [Fatal]
  - Graft versus host disease [Unknown]
  - Platelet count decreased [Unknown]
  - Macule [Unknown]
  - Cytomegalovirus infection [Fatal]
  - Systemic inflammatory response syndrome [Unknown]
  - Enteritis [Unknown]
  - Haemoglobin decreased [Unknown]
  - Papule [Unknown]
  - Malnutrition [Unknown]
  - Intestinal haemorrhage [Unknown]

NARRATIVE: CASE EVENT DATE: 2016
